FAERS Safety Report 14152371 (Version 1)
Quarter: 2017Q4

REPORT INFORMATION
  Report Type: Spontaneous
  Country: US (occurrence: None)
  Receive Date: 20171102
  Receipt Date: 20171102
  Transmission Date: 20180321
  Serious: No
  Sender: FDA-Public Use
  Company Number: None

PATIENT
  Age: 74 Year
  Sex: Male
  Weight: 90.72 kg

DRUGS (19)
  1. TYLENOL [Concomitant]
     Active Substance: ACETAMINOPHEN
  2. DILTIAZEM. [Concomitant]
     Active Substance: DILTIAZEM
  3. PROBIOTIC [Concomitant]
     Active Substance: PROBIOTICS NOS
  4. GLIPIZIDE. [Concomitant]
     Active Substance: GLIPIZIDE
  5. TERAZOSIN [Concomitant]
     Active Substance: TERAZOSIN\TERAZOSIN HYDROCHLORIDE
  6. ULTIMATE COLON CARE FORMULA [Concomitant]
  7. ASPIRIN. [Concomitant]
     Active Substance: ASPIRIN
  8. VITAMIN C [Concomitant]
     Active Substance: ASCORBIC ACID
  9. SAW PALMETTO [Concomitant]
     Active Substance: HERBALS\SAW PALMETTO
  10. PRAVASTATIN. [Concomitant]
     Active Substance: PRAVASTATIN
  11. METOPROLOL. [Concomitant]
     Active Substance: METOPROLOL
  12. LEVOTHYROXINE. [Concomitant]
     Active Substance: LEVOTHYROXINE
  13. COMPLETE VITAMIN [Concomitant]
  14. PRO - 9XR [Concomitant]
  15. VITAMIN D3 [Concomitant]
     Active Substance: CHOLECALCIFEROL
  16. BYDUREON [Suspect]
     Active Substance: EXENATIDE
     Indication: DIABETES MELLITUS
     Dosage: DOSE - 1 PEN - INJECTION - QW
     Dates: start: 20170317, end: 201704
  17. GABAPENTIN. [Concomitant]
     Active Substance: GABAPENTIN
  18. OMEGA-Q [Concomitant]
  19. BLOODBOOST [Concomitant]

REACTIONS (2)
  - Injection site swelling [None]
  - Injection site pain [None]

NARRATIVE: CASE EVENT DATE: 201703
